FAERS Safety Report 4844810-5 (Version None)
Quarter: 2005Q4

REPORT INFORMATION
  Report Type: 
  Country: None (occurrence: None)
  Receive Date: 20051205
  Receipt Date: 20051121
  Transmission Date: 20060501
  Serious: Yes (Other)
  Sender: FDA-Public Use
  Company Number: US-JNJFOC-20051105963

PATIENT
  Age: 39 Year
  Sex: Female
  Weight: 43.09 kg

DRUGS (8)
  1. DURAGESIC-100 [Suspect]
     Route: 062
  2. DURAGESIC-100 [Suspect]
     Route: 062
  3. DURAGESIC-100 [Suspect]
     Route: 062
  4. DURAGESIC-100 [Suspect]
     Route: 062
  5. ZOFRAN [Concomitant]
     Indication: NAUSEA
  6. METHADONE [Concomitant]
     Indication: PAIN
  7. TRAZODONE HCL [Concomitant]
     Indication: PAIN
  8. AXERT [Concomitant]
     Indication: MIGRAINE

REACTIONS (6)
  - DISTURBANCE IN ATTENTION [None]
  - FALL [None]
  - FRACTURE [None]
  - LOSS OF CONSCIOUSNESS [None]
  - PAIN [None]
  - TREMOR [None]
